FAERS Safety Report 10867292 (Version 7)
Quarter: 2017Q2

REPORT INFORMATION
  Report Type: Report from Study
  Country: AU (occurrence: AU)
  Receive Date: 20150225
  Receipt Date: 20170524
  Transmission Date: 20170829
  Serious: Yes (Hospitalization)
  Sender: FDA-Public Use
  Company Number: PHHY2015AU021508

PATIENT
  Age: 33 Year
  Sex: Male
  Weight: 67.8 kg

DRUGS (20)
  1. CLOZARIL [Suspect]
     Active Substance: CLOZAPINE
     Indication: PSYCHOTIC DISORDER
     Dosage: 12.5 MG, MANE
     Route: 048
     Dates: start: 20150109
  2. METFORMIN [Suspect]
     Active Substance: METFORMIN HYDROCHLORIDE
     Dosage: 1 G, BID
     Route: 048
  3. CHOLECALCIFEROL [Concomitant]
     Active Substance: CHOLECALCIFEROL
     Indication: VITAMIN SUPPLEMENTATION
     Dosage: 25 UG, QD
     Route: 048
  4. GLICLAZIDE [Concomitant]
     Active Substance: GLICLAZIDE
     Indication: DIABETES MELLITUS
     Dosage: 60 MG, QD
     Route: 048
  5. RAMIPRIL. [Concomitant]
     Active Substance: RAMIPRIL
     Indication: BLOOD PRESSURE INCREASED
     Dosage: 1.25 MG, QD
     Route: 048
  6. SITAGLIPTIN PHOSPHATE [Concomitant]
     Active Substance: SITAGLIPTIN PHOSPHATE
     Indication: DIABETES MELLITUS
     Dosage: 100 MG, QD
     Route: 048
  7. CLOZARIL [Suspect]
     Active Substance: CLOZAPINE
     Dosage: 375 MG, UNK
     Route: 048
     Dates: start: 20150828
  8. PALIPERIDONE. [Concomitant]
     Active Substance: PALIPERIDONE
     Indication: SCHIZOPHRENIA
     Dosage: 4 WEEKLY
     Route: 030
  9. INSULIN [Concomitant]
     Active Substance: INSULIN NOS
     Indication: DIABETES MELLITUS
     Dosage: UNK (100 UNITS)
     Route: 065
  10. CLOZARIL [Suspect]
     Active Substance: CLOZAPINE
     Indication: SCHIZOPHRENIA
     Dosage: 400 MG, QD
     Route: 048
     Dates: start: 20010227
  11. VITAMIN B [Suspect]
     Active Substance: VITAMIN B
     Indication: PRODUCT USED FOR UNKNOWN INDICATION
     Dosage: 100 MG, QD
     Route: 065
  12. THIAMINE. [Concomitant]
     Active Substance: THIAMINE
     Indication: VITAMIN B1
     Dosage: 100 MG, MANE
     Route: 048
  13. SODIUM VALPROATE [Concomitant]
     Active Substance: VALPROATE SODIUM
     Indication: AFFECTIVE DISORDER
     Dosage: 500 MG, QD (1 MAME AND 2 NOCTE)
     Route: 048
  14. MACROGOL [Concomitant]
     Active Substance: POLYETHYLENE GLYCOLS
     Indication: CONSTIPATION
     Dosage: 13.8 G, UNK
     Route: 048
  15. GLICLAZIDE [Concomitant]
     Active Substance: GLICLAZIDE
     Dosage: UNK (DECREASED DOSE DURING ADMISSION)
     Route: 048
  16. GLYCERYL TRINITRATE [Concomitant]
     Active Substance: NITROGLYCERIN
     Indication: ANGINA PECTORIS
     Dosage: 1 DF, PRN
     Route: 060
  17. CLOZARIL [Suspect]
     Active Substance: CLOZAPINE
     Dosage: UNK
     Route: 048
     Dates: start: 20150119
  18. METFORMIN [Suspect]
     Active Substance: METFORMIN HYDROCHLORIDE
     Indication: PRODUCT USED FOR UNKNOWN INDICATION
     Dosage: 500 MG, BID
     Route: 048
  19. ATORVASTATIN [Concomitant]
     Active Substance: ATORVASTATIN
     Indication: BLOOD CHOLESTEROL
     Dosage: 40 MG, QHS
     Route: 048
  20. RISPERIDONE. [Concomitant]
     Active Substance: RISPERIDONE
     Indication: SCHIZOPHRENIA
     Dosage: 2 MG, QHS
     Route: 048

REACTIONS (44)
  - Mental impairment [Recovered/Resolved]
  - Blood creatinine decreased [Recovered/Resolved]
  - Blood creatinine decreased [Recovered/Resolved]
  - Blood calcium increased [Recovered/Resolved]
  - Blood magnesium decreased [Recovered/Resolved]
  - Mean cell volume decreased [Recovered/Resolved]
  - Anion gap increased [Recovered/Resolved]
  - Alanine aminotransferase increased [Recovered/Resolved]
  - Sinus tachycardia [Unknown]
  - Neutrophil count increased [Recovered/Resolved]
  - Blood chloride decreased [Recovered/Resolved]
  - Blood lactate dehydrogenase decreased [Recovered/Resolved]
  - Blood triglycerides increased [Recovered/Resolved]
  - Blood urea decreased [Recovered/Resolved]
  - Blood urea decreased [Unknown]
  - Red blood cell count increased [Recovered/Resolved]
  - Gamma-glutamyltransferase increased [Recovered/Resolved]
  - Glycosylated haemoglobin increased [Unknown]
  - Blood glucose increased [Recovered/Resolved]
  - Lymphocyte count increased [Recovered/Resolved]
  - Blood lactate dehydrogenase decreased [Recovered/Resolved]
  - Neutrophil count increased [Recovered/Resolved]
  - Mean cell haemoglobin decreased [Not Recovered/Not Resolved]
  - White blood cell count increased [Not Recovered/Not Resolved]
  - Blood sodium decreased [Recovered/Resolved]
  - Blood triglycerides increased [Unknown]
  - Blood glucose increased [Recovered/Resolved]
  - Blood creatine phosphokinase increased [Unknown]
  - Blood creatinine decreased [Not Recovered/Not Resolved]
  - Vitamin D decreased [Unknown]
  - Gamma-glutamyltransferase increased [Recovered/Resolved]
  - Blood alkaline phosphatase increased [Recovered/Resolved]
  - Blood glucose increased [Recovered/Resolved]
  - Blood alkaline phosphatase increased [Recovered/Resolved]
  - Gamma-glutamyltransferase increased [Recovered/Resolved]
  - Mental impairment [Unknown]
  - C-reactive protein increased [Recovered/Resolved]
  - C-reactive protein increased [Recovered/Resolved]
  - Aspartate aminotransferase increased [Recovered/Resolved]
  - Malaise [Unknown]
  - Blood chloride decreased [Unknown]
  - White blood cell count increased [Recovered/Resolved]
  - Antipsychotic drug level decreased [Unknown]
  - Neutrophil count increased [Recovered/Resolved]

NARRATIVE: CASE EVENT DATE: 20130429
